FAERS Safety Report 13748941 (Version 1)
Quarter: 2017Q3

REPORT INFORMATION
  Report Type: Spontaneous
  Country: ZA (occurrence: ZA)
  Receive Date: 20170713
  Receipt Date: 20170713
  Transmission Date: 20171127
  Serious: Yes (Hospitalization)
  Sender: FDA-Public Use
  Company Number: ZA-SUN PHARMACEUTICAL INDUSTRIES LTD-2017R5-144781

PATIENT
  Age: 65 Year
  Sex: Female

DRUGS (1)
  1. ROSVATOR [Suspect]
     Active Substance: ROSUVASTATIN CALCIUM
     Indication: PRODUCT USED FOR UNKNOWN INDICATION
     Dosage: UNK
     Route: 065
     Dates: start: 201701, end: 201703

REACTIONS (20)
  - Eructation [Unknown]
  - Myalgia [Not Recovered/Not Resolved]
  - Peripheral swelling [Not Recovered/Not Resolved]
  - Nausea [Not Recovered/Not Resolved]
  - Pain [Not Recovered/Not Resolved]
  - Dysphonia [Unknown]
  - Dizziness [Not Recovered/Not Resolved]
  - Vertigo [Unknown]
  - Pruritus [Not Recovered/Not Resolved]
  - Abdominal discomfort [Unknown]
  - Dementia [Not Recovered/Not Resolved]
  - Urine abnormality [Unknown]
  - Paraesthesia [Unknown]
  - Chills [Not Recovered/Not Resolved]
  - Sleep disorder [Not Recovered/Not Resolved]
  - Back pain [Unknown]
  - Fall [Unknown]
  - Heart rate decreased [Not Recovered/Not Resolved]
  - Pyrexia [Unknown]
  - Pain in extremity [Unknown]

NARRATIVE: CASE EVENT DATE: 2017
